FAERS Safety Report 7584731-0 (Version None)
Quarter: 2011Q2

REPORT INFORMATION
  Report Type: 
  Country: None (occurrence: None)
  Receive Date: 20110630
  Receipt Date: 20110617
  Transmission Date: 20111010
  Serious: Yes (Hospitalization, Other)
  Sender: FDA-Public Use
  Company Number: PHHY2011JP35805

PATIENT
  Sex: Male
  Weight: 72 kg

DRUGS (8)
  1. MICARDIS [Concomitant]
     Indication: HYPERTENSION
     Dosage: 20 MG, UNK
     Route: 048
     Dates: start: 20080321
  2. FLIVAS [Concomitant]
     Indication: BENIGN PROSTATIC HYPERPLASIA
     Dosage: 50 MG, UNK
     Route: 048
     Dates: start: 20081224, end: 20100127
  3. SANDOSTATIN [Suspect]
     Indication: ACROMEGALY
     Dosage: 50 UG, BID
     Route: 058
     Dates: start: 20081216, end: 20081216
  4. SANDOSTATIN [Suspect]
     Dosage: 100 UG, BID
     Route: 058
     Dates: start: 20081217, end: 20081228
  5. MUCODYNE [Concomitant]
     Indication: CHRONIC RESPIRATORY FAILURE
     Dosage: 1500 MG, UNK
     Route: 048
     Dates: start: 20050713
  6. SPIRIVA [Concomitant]
     Indication: CHRONIC RESPIRATORY FAILURE
     Dosage: 18 UG, UNK
     Dates: start: 20050713
  7. SEREVENT [Concomitant]
     Indication: CHRONIC RESPIRATORY FAILURE
     Dosage: 100 UG, UNK
     Dates: start: 20050713, end: 20070904
  8. AMLODIPINE [Concomitant]
     Indication: HYPERTENSION
     Dosage: 5 MG, UNK
     Route: 048
     Dates: start: 20050713

REACTIONS (5)
  - VOMITING [None]
  - ABDOMINAL DISTENSION [None]
  - INTESTINAL OBSTRUCTION [None]
  - URINARY RETENTION [None]
  - ABDOMINAL PAIN [None]
